FAERS Safety Report 6502597-4 (Version None)
Quarter: 2009Q4

REPORT INFORMATION
  Report Type: 
  Country: None (occurrence: None)
  Receive Date: 20091127
  Receipt Date: 20090923
  Transmission Date: 20100525
  Serious: No
  Sender: FDA-Public Use
  Company Number: 002208

PATIENT

DRUGS (2)
  1. LACOSAMIDE [Suspect]
     Indication: CONVULSION
  2. DEPAKOTE [Concomitant]

REACTIONS (1)
  - SOMNOLENCE [None]
